FAERS Safety Report 8838920 (Version 2)
Quarter: 2012Q4

REPORT INFORMATION
  Report Type: 
  Country: DE (occurrence: DE)
  Receive Date: 20121015
  Receipt Date: 20121022
  Transmission Date: 20130627
  Serious: Yes (Other)
  Sender: FDA-Public Use
  Company Number: DE-AMGEN-DEUSP2012064843

PATIENT
  Age: 81 Year
  Sex: Female
  Weight: 66.9 kg

DRUGS (4)
  1. PROLIA [Suspect]
     Indication: PRODUCT USED FOR UNKNOWN INDICATION
     Dosage: UNK UNK, q6mo
     Route: 058
     Dates: start: 20121003
  2. MARCUMAR [Suspect]
     Indication: CEREBRAL INFARCTION
     Dosage: UNK
     Route: 048
     Dates: start: 2005, end: 2012
  3. PANTOZOL [Concomitant]
     Indication: PROPHYLAXIS
     Dosage: 20 mg, qd
     Route: 048
  4. VITAMIN B12                        /00056201/ [Concomitant]
     Indication: VITAMIN B12 DEFICIENCY
     Dosage: UNK
     Route: 030
     Dates: start: 201207

REACTIONS (1)
  - Haemorrhage [Recovered/Resolved]
